FAERS Safety Report 11700055 (Version 2)
Quarter: 2015Q4

REPORT INFORMATION
  Report Type: Spontaneous
  Country: JP (occurrence: JP)
  Receive Date: 20151105
  Receipt Date: 20151126
  Transmission Date: 20160304
  Serious: Yes (Other)
  Sender: FDA-Public Use
  Company Number: JP-AMGEN-JPNSP2015116705

PATIENT
  Age: 72 Year
  Sex: Female

DRUGS (7)
  1. TAKEPRON [Concomitant]
     Active Substance: LANSOPRAZOLE
     Dosage: 1 DF, QD AFTER DINNER
     Route: 065
  2. LENDORMIN [Concomitant]
     Active Substance: BROTIZOLAM
     Dosage: 0.25 MG, QD BEFORE BEDTIME
     Route: 065
  3. FERROMIA [Concomitant]
     Active Substance: FERROUS CITRATE
     Dosage: 50 MG, QD
     Route: 065
  4. PRALIA [Suspect]
     Active Substance: DENOSUMAB
     Indication: PRODUCT USED FOR UNKNOWN INDICATION
     Dosage: UNK
     Route: 058
     Dates: start: 20150203, end: 20150728
  5. PROGRAF [Concomitant]
     Active Substance: TACROLIMUS\TACROLIMUS ANHYDROUS
     Dosage: 2 MG, QD AFTER DINNER
     Route: 065
  6. ALFAROL [Concomitant]
     Active Substance: ALFACALCIDOL
     Dosage: 2 DF, QD AFTER BREAKFAST
     Route: 065
  7. PREDOHAN [Concomitant]
     Active Substance: PREDNISOLONE
     Dosage: 7.5MG/DAY, BID AFTER BREAKFAST AND DINNER
     Route: 065

REACTIONS (1)
  - Osteonecrosis of jaw [Unknown]
